FAERS Safety Report 9993359 (Version 1)
Quarter: 2014Q1

REPORT INFORMATION
  Report Type: Report from Study
  Country: US (occurrence: US)
  Receive Date: 20140310
  Receipt Date: 20140310
  Transmission Date: 20141002
  Serious: Yes (Hospitalization)
  Sender: FDA-Public Use
  Company Number: US-TAKEDA-2014TUS001609

PATIENT
  Age: 71 Year
  Sex: Male
  Weight: 112.3 kg

DRUGS (21)
  1. BLINDED ALLOPURINOL [Suspect]
     Indication: HYPERURICAEMIA
     Dosage: UNK, QD
     Route: 048
     Dates: start: 20120315, end: 20140122
  2. BLINDED FEBUXOSTAT [Suspect]
     Indication: HYPERURICAEMIA
     Dosage: UNK, QD
     Route: 048
     Dates: start: 20120315, end: 20140122
  3. BLINDED ALLOPURINOL [Suspect]
     Dosage: UNK, QD
     Route: 048
     Dates: start: 20140124
  4. BLINDED FEBUXOSTAT [Suspect]
     Dosage: UNK, QD
     Route: 048
     Dates: start: 20140124
  5. INSULIN NOVULIN 70/30 [Concomitant]
     Indication: DIABETES MELLITUS
     Dosage: 30-70 IU, BID
     Route: 058
     Dates: start: 20100208
  6. SILDENAFIL [Concomitant]
     Indication: ERECTILE DYSFUNCTION
     Dosage: 100 MG, PRN
     Route: 048
     Dates: start: 20100702
  7. SIMVASTATIN [Concomitant]
     Indication: HYPERLIPIDAEMIA
     Dosage: 20 MG, QD
     Route: 048
     Dates: start: 20110729
  8. TEMAZEPAM [Concomitant]
     Indication: INSOMNIA
     Dosage: 30 MG, PRN
     Route: 048
     Dates: start: 20100115
  9. WARFARIN [Concomitant]
     Indication: ATRIAL FIBRILLATION
     Dosage: 2.5-7.5 MG, SUNDAY THROUGH FRIDAY
     Route: 048
     Dates: start: 20110525
  10. WARFARIN [Concomitant]
     Dosage: 2.5-7.5 MG, SATURDAYS
     Route: 048
     Dates: start: 20110525
  11. RANITIDINE [Concomitant]
     Indication: PROPHYLAXIS
     Dosage: 300 MG, QD
     Route: 048
     Dates: start: 20100126
  12. TERAZOSIN [Concomitant]
     Indication: HYPERTENSION
     Dosage: 1 MG, BID
     Route: 048
     Dates: start: 20130522
  13. ETHACRYNIC ACID [Concomitant]
     Indication: HYPERTENSION
     Dosage: 25 MG, QD
     Route: 048
     Dates: start: 20130820
  14. METOLAZONE [Concomitant]
     Indication: HYPERTENSION
     Dosage: 10 MG, QD
     Route: 048
     Dates: start: 20131126
  15. METOPROLOL [Concomitant]
     Indication: HYPERTENSION
     Dosage: 75 MG, BID
     Route: 048
     Dates: start: 20131104
  16. CLOPIDOGREL [Concomitant]
     Indication: CEREBROVASCULAR ACCIDENT PROPHYLAXIS
     Dosage: 75 MG, QD
     Route: 048
     Dates: start: 20131113
  17. CLOPIDOGREL [Concomitant]
     Indication: THROMBOSIS PROPHYLAXIS
  18. CADEXOMER IODINE [Concomitant]
     Indication: WOUND HEALING NORMAL
     Dosage: 1 APPLICATION, QOD
     Route: 061
     Dates: start: 20130726
  19. LOSARTIN [Concomitant]
     Indication: HYPERTENSION
     Dosage: 100 MG, QD
     Route: 048
     Dates: start: 20131107
  20. ERTAPENEM [Concomitant]
     Indication: OSTEOMYELITIS
     Dosage: 1 G, QD
     Route: 042
     Dates: start: 20140122, end: 20140209
  21. DAPTOMYCIN [Concomitant]
     Indication: OSTEOMYELITIS
     Dosage: 700 MG, QD
     Route: 042
     Dates: start: 20140122, end: 20140209

REACTIONS (2)
  - Osteomyelitis [Recovering/Resolving]
  - Pneumonia [Unknown]
